FAERS Safety Report 10440816 (Version 1)
Quarter: 2014Q3

REPORT INFORMATION
  Report Type: Spontaneous
  Country: US (occurrence: None)
  Receive Date: 20140905
  Receipt Date: 20140905
  Transmission Date: 20150326
  Serious: Yes (Other)
  Sender: FDA-Public Use
  Company Number: None

PATIENT
  Age: 53 Year
  Sex: Female
  Weight: 89.36 kg

DRUGS (19)
  1. DOCUSATE SODIUM. [Concomitant]
     Active Substance: DOCUSATE SODIUM
  2. FERROUS SULFATE [Concomitant]
     Active Substance: FERROUS SULFATE\FERROUS SULFATE, DRIED
  3. ERGOCALCIFEROL. [Concomitant]
     Active Substance: ERGOCALCIFEROL
  4. NUCYNTA [Suspect]
     Active Substance: TAPENTADOL HYDROCHLORIDE
     Indication: SCIATICA
     Route: 048
     Dates: start: 20140715
  5. LANTUS SOLOSTAR INSULIN PEN [Concomitant]
  6. SIMVASTATIN. [Concomitant]
     Active Substance: SIMVASTATIN
  7. COREG [Concomitant]
     Active Substance: CARVEDILOL
  8. MICARDIS HCT [Concomitant]
     Active Substance: HYDROCHLOROTHIAZIDE\TELMISARTAN
  9. VITAMIN D2 [Concomitant]
     Active Substance: ERGOCALCIFEROL
  10. TRAMADOL [Concomitant]
     Active Substance: TRAMADOL
  11. CALCIUM PLUS D3 [Concomitant]
  12. METFORMIN [Concomitant]
     Active Substance: METFORMIN HYDROCHLORIDE
  13. HYDROCODONE [Concomitant]
     Active Substance: HYDROCODONE
  14. ACETAMINOPHEN. [Concomitant]
     Active Substance: ACETAMINOPHEN
  15. ASPIRIN. [Concomitant]
     Active Substance: ASPIRIN
  16. HYDRALAZINE [Concomitant]
     Active Substance: HYDRALAZINE HYDROCHLORIDE
  17. NEURONTIN [Concomitant]
     Active Substance: GABAPENTIN
  18. VITAMIN C [Concomitant]
     Active Substance: ASCORBIC ACID
  19. PROTONIX [Concomitant]
     Active Substance: PANTOPRAZOLE SODIUM

REACTIONS (4)
  - Flatulence [None]
  - Eructation [None]
  - Dry mouth [None]
  - Dysphagia [None]

NARRATIVE: CASE EVENT DATE: 201407
